FAERS Safety Report 10055907 (Version 1)
Quarter: 2014Q2

REPORT INFORMATION
  Report Type: Report from Study
  Country: US (occurrence: US)
  Receive Date: 20140403
  Receipt Date: 20140403
  Transmission Date: 20141212
  Serious: Yes (Other)
  Sender: FDA-Public Use
  Company Number: US-ROCHE-1347729

PATIENT
  Sex: Female

DRUGS (15)
  1. HERCEPTIN [Suspect]
     Indication: BREAST CANCER FEMALE
     Dosage: (IN 250 ML NS)
     Route: 042
     Dates: start: 20110919
  2. HERCEPTIN [Suspect]
     Dosage: (IN 250 ML NS) 03/OCT/2011, 10/OCT/2011, 17/OCT/2011, 24/OCT/2011, 31/OCT/2011, 07/NOV/2011, 14/NOV/
     Route: 042
     Dates: start: 20110926
  3. NEUPOGEN [Suspect]
     Indication: BREAST CANCER FEMALE
     Route: 065
     Dates: start: 20110926
  4. NEULASTA [Suspect]
     Indication: BREAST CANCER FEMALE
     Dosage: 20/DEC/2011, 10/JAN/2012
     Route: 065
     Dates: start: 20111122
  5. DEXAMETHASONE SODIUM PHOSPHATE [Concomitant]
     Route: 042
  6. BENADRYL (UNITED STATES) [Concomitant]
     Route: 042
  7. ALOXI [Concomitant]
     Route: 042
  8. ZANTAC [Concomitant]
     Route: 042
  9. TYLENOL [Concomitant]
     Route: 048
  10. DOCETAXEL [Concomitant]
     Route: 042
  11. CARBOPLATIN [Concomitant]
     Route: 065
  12. PEPCID [Concomitant]
     Route: 042
  13. INFLUENZA VIRUS VACCINE [Concomitant]
     Route: 030
     Dates: start: 20111003
  14. ACETAMINOPHEN [Concomitant]
     Route: 048
     Dates: start: 20111212
  15. DIPHENHYDRAMINE HCL [Concomitant]
     Route: 042

REACTIONS (3)
  - Pain [Unknown]
  - Fatigue [Unknown]
  - Platelet count decreased [Unknown]
